FAERS Safety Report 10360363 (Version 1)
Quarter: 2014Q3

REPORT INFORMATION
  Report Type: Spontaneous
  Country: US (occurrence: None)
  Receive Date: 20140731
  Receipt Date: 20140731
  Transmission Date: 20150326
  Serious: Yes (Hospitalization)
  Sender: FDA-Public Use
  Company Number: None

PATIENT
  Age: 66 Year
  Sex: Male

DRUGS (1)
  1. ZIPRASIDONE [Suspect]
     Active Substance: ZIPRASIDONE
     Route: 048
     Dates: start: 20140319, end: 20140501

REACTIONS (11)
  - Muscle rigidity [None]
  - Neuroleptic malignant syndrome [None]
  - Parkinsonism [None]
  - Tachycardia [None]
  - Hypertension [None]
  - Mental status changes [None]
  - Tremor [None]
  - Agitation [None]
  - Blood creatine phosphokinase increased [None]
  - Confusional state [None]
  - Pyrexia [None]

NARRATIVE: CASE EVENT DATE: 20140501
